FAERS Safety Report 8554406-X (Version None)
Quarter: 2012Q3

REPORT INFORMATION
  Report Type: 
  Country: None (occurrence: None)
  Receive Date: 20120731
  Receipt Date: 20120723
  Transmission Date: 20120928
  Serious: Yes (Other)
  Sender: FDA-Public Use
  Company Number: US-009507513-1207USA010577

PATIENT

DRUGS (7)
  1. ZOCOR [Suspect]
     Dosage: 15 MG, QD
     Route: 048
  2. ZOCOR [Suspect]
     Dosage: 10 MG, QD
     Route: 048
  3. AMLODIPINE [Suspect]
     Dosage: 10 MG, QD
     Route: 048
  4. MEDROL [Suspect]
  5. LEVAQUIN [Suspect]
  6. XANAX [Concomitant]
  7. ZOCOR [Suspect]
     Dosage: 25 MG, QD
     Route: 048

REACTIONS (14)
  - FEELING ABNORMAL [None]
  - TRANSIENT ISCHAEMIC ATTACK [None]
  - DRUG DISPENSING ERROR [None]
  - ARTERIAL DISORDER [None]
  - DRUG INEFFECTIVE [None]
  - PRODUCT SUBSTITUTION ISSUE [None]
  - VASCULAR CALCIFICATION [None]
  - DRUG HYPERSENSITIVITY [None]
  - PALPITATIONS [None]
  - DIZZINESS [None]
  - URTICARIA [None]
  - BLOOD PRESSURE INCREASED [None]
  - VITAMIN D DECREASED [None]
  - JOINT SWELLING [None]
